FAERS Safety Report 10228557 (Version 1)
Quarter: 2014Q2

REPORT INFORMATION
  Report Type: Spontaneous
  Country: DE (occurrence: DE)
  Receive Date: 20140610
  Receipt Date: 20140610
  Transmission Date: 20141212
  Serious: Yes (Death)
  Sender: FDA-Public Use
  Company Number: DE-JNJFOC-20140602959

PATIENT
  Age: 63 Year
  Sex: Male
  Weight: 78 kg

DRUGS (17)
  1. IBRUTINIB [Suspect]
     Indication: CHRONIC LYMPHOCYTIC LEUKAEMIA
     Route: 048
     Dates: start: 20140207
  2. COTRIMOXAZOLE [Concomitant]
     Indication: PROPHYLAXIS
     Route: 048
     Dates: start: 20140212
  3. RANITIDINE [Concomitant]
     Indication: PROPHYLAXIS
     Route: 048
     Dates: end: 20140212
  4. BISOPROLOL [Concomitant]
     Indication: HYPERTENSION
     Route: 048
     Dates: end: 20140212
  5. ALLOPURINOL [Concomitant]
     Route: 048
     Dates: end: 20140212
  6. VALACYCLOVIR [Concomitant]
     Indication: PROPHYLAXIS
     Route: 048
     Dates: end: 20140212
  7. CYCLOPHOSPHAMIDE [Concomitant]
     Indication: CHRONIC LYMPHOCYTIC LEUKAEMIA
     Route: 042
     Dates: start: 20140205, end: 20140209
  8. DEXAMETHASONE [Concomitant]
     Indication: CHRONIC LYMPHOCYTIC LEUKAEMIA
     Route: 042
     Dates: start: 20140205, end: 20140208
  9. RITUXIMAB [Concomitant]
     Indication: CHRONIC LYMPHOCYTIC LEUKAEMIA
     Dates: end: 20140131
  10. BLEOMYCIN [Concomitant]
     Indication: CHRONIC LYMPHOCYTIC LEUKAEMIA
     Dates: end: 20140131
  11. VINCRISTINE [Concomitant]
     Indication: CHRONIC LYMPHOCYTIC LEUKAEMIA
     Dates: end: 20140131
  12. MITOXANTRONE [Concomitant]
     Indication: CHRONIC LYMPHOCYTIC LEUKAEMIA
     Dates: end: 20140131
  13. BENDAMUSTINE [Concomitant]
     Indication: CHRONIC LYMPHOCYTIC LEUKAEMIA
     Dates: end: 20140131
  14. OFATUMUMAB [Concomitant]
     Indication: CHRONIC LYMPHOCYTIC LEUKAEMIA
     Dates: end: 20140131
  15. METHOTREXATE [Concomitant]
     Indication: PROPHYLAXIS
     Route: 037
     Dates: start: 20140205
  16. DEXAMETHASONE [Concomitant]
     Route: 037
     Dates: start: 20140205
  17. CYTARABINE [Concomitant]
     Route: 037
     Dates: start: 20140205

REACTIONS (1)
  - Cerebral haemorrhage [Fatal]
